FAERS Safety Report 6713320-2 (Version None)
Quarter: 2010Q2

REPORT INFORMATION
  Report Type: 
  Country: None (occurrence: None)
  Receive Date: 20100506
  Receipt Date: 20100427
  Transmission Date: 20101027
  Serious: Yes (Life-Threatening, Hospitalization, Other)
  Sender: FDA-Public Use
  Company Number: BR-TEVA-185634ISR

PATIENT
  Sex: Female
  Weight: 65.3 kg

DRUGS (10)
  1. FLUOROURACIL [Suspect]
     Indication: COLORECTAL CANCER
     Route: 040
     Dates: start: 20080805
  2. FLUOROURACIL [Suspect]
     Route: 041
     Dates: start: 20080805
  3. IRINOTECAN HYDROCHLORIDE [Suspect]
     Indication: COLORECTAL CANCER
     Route: 042
     Dates: start: 20080805
  4. CALCIUM FOLINATE [Suspect]
     Indication: COLORECTAL CANCER
     Route: 042
     Dates: start: 20080805
  5. SUNITINIB MALATE [Suspect]
     Indication: COLORECTAL CANCER
     Route: 048
     Dates: start: 20080508
  6. HYDROCHLOROTHIAZIDE [Concomitant]
     Dates: start: 20080401
  7. CAPTOPRIL [Concomitant]
     Dates: start: 20080401
  8. NIFEDIPINE [Concomitant]
     Dates: start: 20080401
  9. BROMOPRIDE [Concomitant]
     Dates: start: 20080804
  10. LOPERAMIDE HYDROCHLORIDE [Concomitant]
     Dates: start: 20080819

REACTIONS (1)
  - PULMONARY EMBOLISM [None]
